FAERS Safety Report 16119187 (Version 1)
Quarter: 2019Q1

REPORT INFORMATION
  Report Type: Spontaneous
  Country: US (occurrence: US)
  Receive Date: 20190222
  Receipt Date: 20190222
  Transmission Date: 20190418
  Serious: No
  Sender: FDA-Public Use
  Company Number: None

PATIENT
  Age: 16 Year
  Sex: Female

DRUGS (1)
  1. NORDITROPIN [Suspect]
     Active Substance: SOMATROPIN
     Dates: start: 201708

REACTIONS (3)
  - Treatment noncompliance [None]
  - Acne [None]
  - Disease recurrence [None]

NARRATIVE: CASE EVENT DATE: 20190222
